FAERS Safety Report 11423137 (Version 1)
Quarter: 2015Q3

REPORT INFORMATION
  Report Type: Spontaneous
  Country: US (occurrence: None)
  Receive Date: 20150826
  Receipt Date: 20150826
  Transmission Date: 20151125
  Serious: No
  Sender: FDA-Public Use
  Company Number: None

PATIENT
  Age: 54 Year
  Sex: Female
  Weight: 58.97 kg

DRUGS (3)
  1. METRONIDAZOLE. [Suspect]
     Active Substance: METRONIDAZOLE
     Indication: LYME DISEASE
     Route: 048
     Dates: start: 20150817, end: 20150818
  2. LEVOTHYROXEN [Concomitant]
  3. AMOXICILLIN. [Concomitant]
     Active Substance: AMOXICILLIN

REACTIONS (5)
  - Chest pain [None]
  - Abdominal pain upper [None]
  - Mucous stools [None]
  - Paraesthesia [None]
  - Haematochezia [None]

NARRATIVE: CASE EVENT DATE: 20150817
